FAERS Safety Report 8509160-4 (Version None)
Quarter: 2012Q3

REPORT INFORMATION
  Report Type: 
  Country: None (occurrence: None)
  Receive Date: 20120713
  Receipt Date: 20120709
  Transmission Date: 20120928
  Serious: Yes (Other)
  Sender: FDA-Public Use
  Company Number: LT-GLAXOSMITHKLINE-B0814105A

PATIENT
  Age: 24 Year
  Sex: Female

DRUGS (1)
  1. POTIGA [Suspect]
     Indication: PARTIAL SEIZURES
     Route: 065
     Dates: end: 20120601

REACTIONS (2)
  - EPILEPSY [None]
  - SOMNOLENCE [None]
